FAERS Safety Report 9523885 (Version 1)
Quarter: 2013Q3

REPORT INFORMATION
  Report Type: Spontaneous
  Country: US (occurrence: None)
  Receive Date: 20130912
  Receipt Date: 20130912
  Transmission Date: 20140515
  Serious: Yes (Hospitalization)
  Sender: FDA-Public Use
  Company Number: US-000775

PATIENT
  Age: 58 Year
  Sex: Male

DRUGS (1)
  1. GATTEX [Suspect]
     Indication: SHORT-BOWEL SYNDROME
     Dosage: STREN/VOLUM: 0.40ML;FREQU: ONCE DAILY SUBCUTANEOUS
     Route: 058
     Dates: start: 2013, end: 20130823

REACTIONS (2)
  - Pancreatitis [None]
  - Blood potassium decreased [None]
